FAERS Safety Report 23592071 (Version 1)
Quarter: 2024Q1

REPORT INFORMATION
  Report Type: Spontaneous
  Country: PT (occurrence: PT)
  Receive Date: 20240304
  Receipt Date: 20240304
  Transmission Date: 20240409
  Serious: Yes (Other)
  Sender: FDA-Public Use
  Company Number: PT-KRKA-PT2024K01956LIT

PATIENT
  Age: 62 Year
  Sex: Female

DRUGS (5)
  1. DULOXETINE [Interacting]
     Active Substance: DULOXETINE
     Indication: Fibromyalgia
     Dosage: UNK
     Route: 065
  2. DULOXETINE [Interacting]
     Active Substance: DULOXETINE
     Dosage: 60 MILLIGRAM (INCREASING THE DOSE OF DULOXETINE TO 60 MG)
     Route: 065
  3. SIMVASTATIN [Interacting]
     Active Substance: SIMVASTATIN
     Indication: Dyslipidaemia
     Dosage: 20 MILLIGRAM, QD (20 MG, 1X PER DAY, 0?+?0?+?1)
     Route: 065
  4. CARVEDILOL [Interacting]
     Active Substance: CARVEDILOL
     Indication: Hypertension
     Dosage: 6.25 MILLIGRAM (6.25 MG, 2X PER DAY, 1?+?0?+?1  )
     Route: 065
  5. AMITRIPTYLINE [Concomitant]
     Active Substance: AMITRIPTYLINE
     Indication: Fibromyalgia
     Dosage: 20 MILLIGRAM (20 MG 0 + 0 + 1)
     Route: 065

REACTIONS (2)
  - Hallucination, visual [Recovered/Resolved]
  - Potentiating drug interaction [Unknown]
